FAERS Safety Report 8372712-9 (Version None)
Quarter: 2012Q2

REPORT INFORMATION
  Report Type: 
  Country: None (occurrence: None)
  Receive Date: 20120521
  Receipt Date: 20120509
  Transmission Date: 20120825
  Serious: No
  Sender: FDA-Public Use
  Company Number: US-B.I. PHARMACEUTICALS,INC./RIDGEFIELD-2012-BP-10508BP

PATIENT
  Sex: Male

DRUGS (3)
  1. CATAPRES-TTS-1 [Suspect]
  2. ENBREL [Concomitant]
     Indication: RHEUMATOID ARTHRITIS
     Dosage: 7.1429 MG
     Route: 058
     Dates: start: 20110706, end: 20111223
  3. FUROSEMIDE [Concomitant]
     Dates: start: 20020701

REACTIONS (1)
  - DERMATITIS ALLERGIC [None]
